FAERS Safety Report 10483739 (Version 1)
Quarter: 2014Q3

REPORT INFORMATION
  Report Type: Spontaneous
  Country: US (occurrence: None)
  Receive Date: 20140929
  Receipt Date: 20140929
  Transmission Date: 20150326
  Serious: Yes (Life-Threatening)
  Sender: FDA-Public Use
  Company Number: None

PATIENT
  Age: 75 Year
  Sex: Male
  Weight: 68 kg

DRUGS (1)
  1. AMPHOTERICIN [Suspect]
     Active Substance: AMPHOTERICIN B
     Indication: GINGIVITIS
     Route: 048
     Dates: start: 20140922, end: 20140922

REACTIONS (9)
  - Pyrexia [None]
  - Abdominal pain [None]
  - Diarrhoea [None]
  - Drug dispensing error [None]
  - Product tampering [None]
  - Abdominal distension [None]
  - Gingival swelling [None]
  - Confusional state [None]
  - Condition aggravated [None]

NARRATIVE: CASE EVENT DATE: 20140923
